FAERS Safety Report 5889963-5 (Version None)
Quarter: 2008Q3

REPORT INFORMATION
  Report Type: 
  Country: None (occurrence: None)
  Receive Date: 20080919
  Receipt Date: 20080908
  Transmission Date: 20090109
  Serious: Yes (Other)
  Sender: FDA-Public Use
  Company Number: FR-ROCHE-586333

PATIENT
  Age: 31 Year
  Sex: Male
  Weight: 63 kg

DRUGS (3)
  1. CLONAZEPAM [Suspect]
     Indication: CONVULSION
     Route: 065
  2. CARBIMAZOLE [Suspect]
     Route: 065
  3. PROPILTIOURACILE [Suspect]
     Route: 065

REACTIONS (4)
  - CONVULSION [None]
  - GRANULOCYTOPENIA [None]
  - MUSCULAR WEAKNESS [None]
  - RESPIRATORY FAILURE [None]
